FAERS Safety Report 8277023-8 (Version None)
Quarter: 2012Q2

REPORT INFORMATION
  Report Type: 
  Country: None (occurrence: None)
  Receive Date: 20120412
  Receipt Date: 20120403
  Transmission Date: 20120825
  Serious: Yes (Hospitalization)
  Sender: FDA-Public Use
  Company Number: US-ASTRAZENECA-2012SE21932

PATIENT
  Age: 65 Year
  Sex: Female
  Weight: 65.8 kg

DRUGS (3)
  1. NEXIUM [Suspect]
     Indication: GASTROOESOPHAGEAL REFLUX DISEASE
     Dosage: EVERYDAY
     Route: 048
     Dates: start: 20120201, end: 20120319
  2. METFORMIN HCL [Concomitant]
  3. OMEPRAZOLE [Suspect]
     Route: 048

REACTIONS (10)
  - GASTROINTESTINAL INFLAMMATION [None]
  - DYSPNOEA [None]
  - COUGH [None]
  - ABDOMINAL PAIN UPPER [None]
  - HEADACHE [None]
  - INTENTIONAL DRUG MISUSE [None]
  - CHEST PAIN [None]
  - OROPHARYNGEAL PAIN [None]
  - THROAT TIGHTNESS [None]
  - MALAISE [None]
